FAERS Safety Report 9762562 (Version 1)
Quarter: 2013Q4

REPORT INFORMATION
  Report Type: Spontaneous
  Country: BR (occurrence: None)
  Receive Date: 20131213
  Receipt Date: 20131213
  Transmission Date: 20140711
  Serious: Yes (Other)
  Sender: FDA-Public Use
  Company Number: AUR-APL-2013-10467

PATIENT
  Age: 65 Year
  Sex: Female
  Weight: 75 kg

DRUGS (7)
  1. ATENOLOL (ATENOLOL) [Suspect]
     Indication: HYPERTENSION
     Route: 048
     Dates: start: 2007
  2. SIMVASTATIN (SIMVASTATIN) [Suspect]
     Route: 048
     Dates: start: 2007, end: 201310
  3. ATACAND HCT [Suspect]
     Indication: HYPERTENSION
     Dosage: EVERY MORNING
     Route: 048
     Dates: start: 2007
  4. CRESTOR (ROSUVASTATIN CALCIUM) [Suspect]
     Route: 048
     Dates: end: 2012
  5. GLIFAGE XR [Suspect]
     Indication: TYPE 2 DIABETES MELLITUS
     Route: 048
     Dates: start: 2007, end: 201310
  6. ASPIRIN (ACETYLSALICYLIC ACID) [Concomitant]
  7. LIPLESS (CIPROFIBRATE) [Concomitant]

REACTIONS (6)
  - Nausea [None]
  - Depression [None]
  - Insomnia [None]
  - Oedema peripheral [None]
  - Blood glucose increased [None]
  - Blood triglycerides increased [None]
